FAERS Safety Report 4601880-7 (Version None)
Quarter: 2005Q1

REPORT INFORMATION
  Report Type: 
  Country: None (occurrence: None)
  Receive Date: 20050201
  Receipt Date: 20040204
  Transmission Date: 20050727
  Serious: Yes (Hospitalization, Other)
  Sender: FDA-Public Use
  Company Number: 200412157BWH

PATIENT
  Age: 54 Year
  Sex: Female

DRUGS (2)
  1. AVELOX [Suspect]
     Indication: COUGH
     Dosage: 400 MG, QD, ORAL
     Route: 048
     Dates: start: 20040120, end: 20040121
  2. SUDAFED 12 HOUR [Concomitant]

REACTIONS (14)
  - AGGRESSION [None]
  - AGITATION [None]
  - BLOOD ALBUMIN DECREASED [None]
  - CONDITION AGGRAVATED [None]
  - CONFUSIONAL STATE [None]
  - DELUSION [None]
  - DISORIENTATION [None]
  - HALLUCINATION [None]
  - HEPATIC ENZYME INCREASED [None]
  - INSOMNIA [None]
  - PARANOIA [None]
  - PSYCHOTIC DISORDER [None]
  - SLEEP DISORDER [None]
  - SPEECH DISORDER [None]
